FAERS Safety Report 8102626-0 (Version None)
Quarter: 2011Q4

REPORT INFORMATION
  Report Type: 
  Country: None (occurrence: None)
  Receive Date: 20111222
  Receipt Date: 20110906
  Transmission Date: 20120403
  Serious: Yes (Death)
  Sender: FDA-Public Use
  Company Number: UTC-009985

PATIENT
  Age: 78 Year
  Sex: Female
  Weight: 70 kg

DRUGS (2)
  1. DIURETICS (DIURETICS) [Concomitant]
  2. TYVASO [Suspect]
     Indication: PULMONARY ARTERIAL HYPERTENSION
     Dosage: 144 MCG (36 MCG,4 IN 1 D),INHALATION
     Route: 055
     Dates: start: 20110722

REACTIONS (4)
  - PULMONARY ARTERIAL HYPERTENSION [None]
  - ABDOMINAL PAIN [None]
  - INSOMNIA [None]
  - SYNCOPE [None]
